FAERS Safety Report 4305525-5 (Version None)
Quarter: 2004Q1

REPORT INFORMATION
  Report Type: 
  Country: None (occurrence: None)
  Receive Date: 20040226
  Receipt Date: 20031113
  Transmission Date: 20041129
  Serious: No
  Sender: FDA-Public Use
  Company Number: US-BRISTOL-MYERS SQUIBB COMPANY-12435228

PATIENT
  Age: 5 Year
  Sex: Female

DRUGS (2)
  1. ABILIFY [Suspect]
     Indication: AFFECTIVE DISORDER
     Route: 048
     Dates: start: 20030916, end: 20031126
  2. CLONIDINE [Concomitant]
     Indication: INSOMNIA

REACTIONS (3)
  - BRADYPHRENIA [None]
  - HYPERPHAGIA [None]
  - MEMORY IMPAIRMENT [None]
